FAERS Safety Report 15406861 (Version 2)
Quarter: 2018Q4

REPORT INFORMATION
  Report Type: Spontaneous
  Country: GR (occurrence: GR)
  Receive Date: 20180920
  Receipt Date: 20181005
  Transmission Date: 20190204
  Serious: Yes (Other)
  Sender: FDA-Public Use
  Company Number: GR-ASTRAZENECA-2018SE75995

PATIENT
  Age: 69 Year
  Sex: Female

DRUGS (11)
  1. TERIPARATIDE [Suspect]
     Active Substance: TERIPARATIDE
     Indication: OSTEOPOROSIS
     Dosage: 20UG/INHAL DAILY
     Route: 058
     Dates: start: 20180227
  2. ZANTAC [Suspect]
     Active Substance: RANITIDINE HYDROCHLORIDE
     Indication: PRODUCT USED FOR UNKNOWN INDICATION
     Route: 048
  3. EUTHYROX [Concomitant]
     Active Substance: LEVOTHYROXINE SODIUM
     Indication: THYROID MASS
     Dosage: 1 DF, 6/W
  4. MODURETIC 5-50 [Suspect]
     Active Substance: AMILORIDE HYDROCHLORIDE\HYDROCHLOROTHIAZIDE
     Indication: HYPERTENSION
     Dosage: HALF TAB, EACH MORNING
     Route: 048
  5. CALCIORAL D3 [Concomitant]
     Indication: OSTEOPOROSIS
     Dosage: AFTERNOON, DAILY
     Route: 065
  6. APROVEL [Concomitant]
     Active Substance: IRBESARTAN
     Indication: HYPERTENSION
     Dosage: HALF TAB, EACH EVENING
  7. LOSEC [Suspect]
     Active Substance: OMEPRAZOLE
     Indication: GASTRIC DISORDER
     Dosage: EVERY OTHER DAY
     Route: 048
  8. METHOTREXATE. [Concomitant]
     Active Substance: METHOTREXATE
     Indication: RHEUMATOID ARTHRITIS
     Dosage: 2 TAB, IN MORNING AND NOON, WEEKLY (1/W)
     Route: 065
  9. TERIPARATIDE [Suspect]
     Active Substance: TERIPARATIDE
     Indication: OSTEOPOROSIS
     Dosage: 20UG/INHAL DAILY
     Route: 058
     Dates: start: 20180427
  10. TERIPARATIDE [Suspect]
     Active Substance: TERIPARATIDE
     Indication: OSTEOPOROSIS
     Dosage: 20UG/INHAL DAILY
     Route: 058
  11. CORTISONE [Concomitant]
     Active Substance: CORTISONE\HYDROCORTISONE
     Indication: RHEUMATOID ARTHRITIS
     Dosage: 1.5 TAB, DAILY

REACTIONS (12)
  - Oesophageal pain [Recovered/Resolved]
  - Blood pressure systolic increased [Recovered/Resolved]
  - Dizziness [Unknown]
  - Product dose omission [Recovered/Resolved]
  - Vomiting [Unknown]
  - Musculoskeletal pain [Recovered/Resolved]
  - Bone pain [Unknown]
  - Blood pressure decreased [Not Recovered/Not Resolved]
  - Gastritis [Not Recovered/Not Resolved]
  - Chest pain [Unknown]
  - Gastric polyps [Not Recovered/Not Resolved]
  - Heart rate increased [Recovered/Resolved]

NARRATIVE: CASE EVENT DATE: 20180424
